FAERS Safety Report 8973983 (Version 1)
Quarter: 2012Q4

REPORT INFORMATION
  Report Type: 
  Country: US (occurrence: US)
  Receive Date: 20121218
  Receipt Date: 20121218
  Transmission Date: 20130627
  Serious: Yes (Other)
  Sender: FDA-Public Use
  Company Number: US-BRISTOL-MYERS SQUIBB COMPANY-16397507

PATIENT
  Age: 68 Year
  Sex: Male

DRUGS (6)
  1. ABILIFY [Suspect]
     Indication: DEPRESSION
     Dosage: dose was moved up half of 15mg daily,
     Route: 048
     Dates: start: 20070711, end: 20110411
  2. SERTRALINE [Suspect]
  3. WELLBUTRIN [Concomitant]
  4. CYMBALTA [Concomitant]
  5. ADDERALL [Concomitant]
  6. FLUOXETINE [Concomitant]

REACTIONS (1)
  - Tardive dyskinesia [Unknown]
